FAERS Safety Report 19651268 (Version 1)
Quarter: 2021Q3

REPORT INFORMATION
  Report Type: Spontaneous
  Country: FR (occurrence: FR)
  Receive Date: 20210803
  Receipt Date: 20210803
  Transmission Date: 20211014
  Serious: Yes (Hospitalization)
  Sender: FDA-Public Use
  Company Number: FR-VALIDUS PHARMACEUTICALS LLC-FR-VDP-2021-000238

PATIENT
  Age: 6 Year
  Sex: Male

DRUGS (3)
  1. CLAFORAN [Suspect]
     Active Substance: CEFOTAXIME SODIUM
     Indication: PNEUMONIA ASPIRATION
     Dosage: UNK, NOS
     Route: 042
     Dates: start: 20210618, end: 20210624
  2. LEVETIRACETAM. [Suspect]
     Active Substance: LEVETIRACETAM
     Indication: SEIZURE
     Dosage: 400 MILLIGRAM, BID
     Route: 048
     Dates: start: 20210618, end: 20210629
  3. FLAGYL [Suspect]
     Active Substance: METRONIDAZOLE\METRONIDAZOLE HYDROCHLORIDE
     Indication: PNEUMONIA ASPIRATION
     Dosage: UNK, NOS
     Route: 042
     Dates: start: 20210618, end: 20210624

REACTIONS (3)
  - Tremor [Recovered/Resolved]
  - Transaminases increased [Recovered/Resolved]
  - Ataxia [Recovered/Resolved]
